FAERS Safety Report 8584870-1 (Version None)
Quarter: 2012Q3

REPORT INFORMATION
  Report Type: 
  Country: None (occurrence: None)
  Receive Date: 20120810
  Receipt Date: 20120727
  Transmission Date: 20120928
  Serious: Yes (Hospitalization, Other)
  Sender: FDA-Public Use
  Company Number: IT-ELI_LILLY_AND_COMPANY-IT200911003070

PATIENT
  Age: 26 Year
  Sex: Female

DRUGS (2)
  1. DULOXETINE HYDROCHLORIDE [Suspect]
     Indication: VULVOVAGINAL PAIN
     Dosage: 60 MG, QD
     Dates: start: 20090801, end: 20090916
  2. CARBAMAZEPINE [Concomitant]
     Indication: VULVOVAGINAL PAIN
     Dosage: 400 MG, QD
     Dates: start: 20090801, end: 20090916

REACTIONS (7)
  - POLYSEROSITIS [None]
  - ASCITES [None]
  - URTICARIA [None]
  - PLEURAL EFFUSION [None]
  - ANGIOEDEMA [None]
  - OFF LABEL USE [None]
  - HEPATITIS [None]
